FAERS Safety Report 4374913-3 (Version None)
Quarter: 2004Q2

REPORT INFORMATION
  Report Type: 
  Country: None (occurrence: None)
  Receive Date: 20040609
  Receipt Date: 20040330
  Transmission Date: 20050107
  Serious: Yes (Hospitalization)
  Sender: FDA-Public Use
  Company Number: PHHO2004CA05075

PATIENT
  Age: 18 Year
  Sex: Male

DRUGS (7)
  1. CLOZARIL [Suspect]
     Indication: SCHIZOAFFECTIVE DISORDER
     Dosage: 600 MG/DAY
     Route: 048
     Dates: start: 20000108
  2. ZOCOR [Concomitant]
  3. FERROUS GLUCONATE [Concomitant]
  4. DIVALPROEX SODIUM [Concomitant]
  5. LORAZEPAM [Concomitant]
  6. BENZOYL PEROXIDE [Concomitant]
  7. ZINC GLUCONATE [Concomitant]

REACTIONS (3)
  - LYMPHOCYTE MORPHOLOGY ABNORMAL [None]
  - LYMPHOCYTOSIS [None]
  - WHITE BLOOD CELL COUNT INCREASED [None]
